FAERS Safety Report 9419523 (Version 2)
Quarter: 2013Q3

REPORT INFORMATION
  Report Type: Spontaneous
  Country: GB (occurrence: None)
  Receive Date: 20130723
  Receipt Date: 20130805
  Transmission Date: 20140515
  Serious: Yes (Other)
  Sender: FDA-Public Use
  Company Number: GER/UKI/13/0031987

PATIENT
  Age: 78 Year
  Sex: Male
  Weight: 70 kg

DRUGS (5)
  1. CIPROFLOXACIN [Suspect]
     Indication: INFECTION
  2. MACROGOL [Concomitant]
     Indication: PRODUCT USED FOR UNKNOWN INDICATION
  3. MESALAZINE [Concomitant]
  4. PREDNISOLONE [Concomitant]
  5. TAMSULOSIN [Concomitant]

REACTIONS (2)
  - Arthralgia [None]
  - Tendonitis [None]
